FAERS Safety Report 14780975 (Version 1)
Quarter: 2018Q2

REPORT INFORMATION
  Report Type: Spontaneous
  Country: CH (occurrence: CH)
  Receive Date: 20180419
  Receipt Date: 20180419
  Transmission Date: 20180711
  Serious: Yes (Life-Threatening, Hospitalization)
  Sender: FDA-Public Use
  Company Number: CH-TEVA-2018-CH-882399

PATIENT
  Age: 82 Year
  Sex: Female

DRUGS (7)
  1. DANCOR [Concomitant]
     Active Substance: NICORANDIL
     Dosage: 20 MILLIGRAM DAILY;
     Route: 065
  2. SOTALOL MEPHA 80 TABLETTEN [Suspect]
     Active Substance: SOTALOL HYDROCHLORIDE
     Dosage: 2 DOSAGE FORMS DAILY;
     Route: 048
     Dates: start: 201802, end: 20180328
  3. TORASEMID SANDOZ ECO [Suspect]
     Active Substance: TORSEMIDE
     Dosage: 5 MILLIGRAM DAILY;
     Route: 048
     Dates: end: 20180328
  4. PANTOZOL [Concomitant]
     Active Substance: PANTOPRAZOLE SODIUM
     Route: 065
  5. XARELTO [Concomitant]
     Active Substance: RIVAROXABAN
     Route: 065
     Dates: end: 201803
  6. METOLAZON [Suspect]
     Active Substance: METOLAZONE
     Dosage: 5 MILLIGRAM DAILY;
     Route: 048
  7. KCL RETARD ZYMA [Concomitant]
     Active Substance: POTASSIUM CHLORIDE
     Route: 065

REACTIONS (3)
  - Torsade de pointes [Recovered/Resolved]
  - Hypokalaemia [Recovered/Resolved]
  - Cardiac arrest [Recovered/Resolved]

NARRATIVE: CASE EVENT DATE: 20180328
